FAERS Safety Report 6620878-0 (Version None)
Quarter: 2010Q1

REPORT INFORMATION
  Report Type: 
  Country: None (occurrence: None)
  Receive Date: 20100309
  Receipt Date: 20100301
  Transmission Date: 20100710
  Serious: Yes (Other)
  Sender: FDA-Public Use
  Company Number: B0636989A

PATIENT

DRUGS (1)
  1. NIQUITIN [Suspect]
     Indication: DRUG USE FOR UNKNOWN INDICATION
     Route: 065

REACTIONS (3)
  - DRUG DEPENDENCE [None]
  - HEADACHE [None]
  - OBSESSIVE THOUGHTS [None]
